FAERS Safety Report 12806426 (Version 1)
Quarter: 2016Q4

REPORT INFORMATION
  Report Type: Spontaneous
  Country: US (occurrence: US)
  Receive Date: 20161004
  Receipt Date: 20161004
  Transmission Date: 20170207
  Serious: No
  Sender: FDA-Public Use
  Company Number: None

PATIENT
  Age: 67 Year
  Sex: Male
  Weight: 88.91 kg

DRUGS (3)
  1. LEVOTHYROXIN [Concomitant]
     Active Substance: LEVOTHYROXINE
  2. ASPIRIN. [Concomitant]
     Active Substance: ASPIRIN
  3. ROSUVASTATIN CAL. 5MG TAB ANDA PHARM [Suspect]
     Active Substance: ROSUVASTATIN CALCIUM
     Indication: BLOOD CHOLESTEROL INCREASED
     Dosage: ROSUVASTATIN CAL. 5MG TAB - QUANITY 30 - PO QD
     Route: 048
     Dates: start: 20160907, end: 20160914

REACTIONS (7)
  - Fatigue [None]
  - Headache [None]
  - Back pain [None]
  - Product substitution issue [None]
  - Pain in extremity [None]
  - Myalgia [None]
  - Chest pain [None]

NARRATIVE: CASE EVENT DATE: 20160908
